FAERS Safety Report 25350441 (Version 1)
Quarter: 2025Q2

REPORT INFORMATION
  Report Type: Spontaneous
  Country: RU (occurrence: RU)
  Receive Date: 20250523
  Receipt Date: 20250523
  Transmission Date: 20250717
  Serious: Yes (Other)
  Sender: ROCHE
  Company Number: RU-ROCHE-10000283703

PATIENT
  Age: 25 Year
  Sex: Female

DRUGS (12)
  1. TRASTUZUMAB [Suspect]
     Active Substance: TRASTUZUMAB
     Indication: HER2 positive breast cancer
     Dosage: (LOADING DOSE 8 MG/KG)
     Route: 065
     Dates: start: 202012, end: 202106
  2. TRASTUZUMAB [Suspect]
     Active Substance: TRASTUZUMAB
     Dosage: (LOADING DOSE 8 MG/KG)
     Route: 042
     Dates: start: 20230614, end: 20231213
  3. TRASTUZUMAB [Suspect]
     Active Substance: TRASTUZUMAB
     Dosage: (LOADING DOSE 8 MG/KG)
     Route: 042
     Dates: start: 20231213, end: 202412
  4. PERJETA [Suspect]
     Active Substance: PERTUZUMAB
     Indication: HER2 positive breast cancer
     Dosage: (LOADING DOSE 840 MG)
     Route: 065
     Dates: start: 202012, end: 202106
  5. PERJETA [Suspect]
     Active Substance: PERTUZUMAB
     Dosage: (LOADING DOSE 840 MG)
     Route: 065
     Dates: start: 20230614, end: 20231213
  6. PERJETA [Suspect]
     Active Substance: PERTUZUMAB
     Dosage: (LOADING DOSE 840 MG)
     Route: 065
     Dates: start: 20231213, end: 202412
  7. ADO-TRASTUZUMAB EMTANSINE [Suspect]
     Active Substance: ADO-TRASTUZUMAB EMTANSINE
     Indication: HER2 positive breast cancer
     Route: 065
     Dates: start: 20250114
  8. DOCETAXEL [Suspect]
     Active Substance: DOCETAXEL
     Indication: HER2 positive breast cancer
     Route: 065
     Dates: start: 202012, end: 202106
  9. CARBOPLATIN [Suspect]
     Active Substance: CARBOPLATIN
     Indication: HER2 positive breast cancer
     Route: 065
     Dates: start: 202012, end: 202106
  10. DENOSUMAB [Suspect]
     Active Substance: DENOSUMAB
     Indication: HER2 positive breast cancer
     Route: 065
     Dates: start: 20250114
  11. DENOSUMAB [Suspect]
     Active Substance: DENOSUMAB
     Route: 058
     Dates: start: 20230614, end: 20231213
  12. PACLITAXEL [Suspect]
     Active Substance: PACLITAXEL
     Indication: HER2 positive breast cancer
     Route: 065
     Dates: start: 20230614, end: 20231213

REACTIONS (8)
  - Asthenia [Unknown]
  - Diarrhoea [Unknown]
  - Lymphadenopathy [Unknown]
  - Metastases to central nervous system [Unknown]
  - Myopia [Unknown]
  - Cataract [Unknown]
  - Metastases to lymph nodes [Unknown]
  - Disease progression [Unknown]
